FAERS Safety Report 8088242-8 (Version None)
Quarter: 2012Q1

REPORT INFORMATION
  Report Type: 
  Country: None (occurrence: None)
  Receive Date: 20120131
  Receipt Date: 20120120
  Transmission Date: 20120608
  Serious: No
  Sender: FDA-Public Use
  Company Number: US-BIOGENIDEC-2012BI002468

PATIENT
  Age: 52 Year
  Sex: Female

DRUGS (1)
  1. AVONEX [Suspect]
     Indication: MULTIPLE SCLEROSIS
     Route: 030
     Dates: start: 20111014

REACTIONS (8)
  - HYPERSOMNIA [None]
  - FEELING COLD [None]
  - LOWER RESPIRATORY TRACT INFECTION [None]
  - ASTHENIA [None]
  - RESPIRATORY TRACT CONGESTION [None]
  - INFLUENZA [None]
  - PAIN [None]
  - PYREXIA [None]
